FAERS Safety Report 26218891 (Version 1)
Quarter: 2025Q4

REPORT INFORMATION
  Report Type: Spontaneous
  Country: None (occurrence: EU)
  Receive Date: 20251231
  Receipt Date: 20251231
  Transmission Date: 20260118
  Serious: Yes (Other)
  Sender: ALNYLAM PHARMACEUTICALS
  Company Number: EU-ALNYLAM PHARMACEUTICALS, INC.-ALN-2025-008255

PATIENT
  Age: 16 Year

DRUGS (2)
  1. OXLUMO [Suspect]
     Active Substance: LUMASIRAN
     Indication: Primary hyperoxaluria
     Dosage: 3 MILLIGRAM/KILOGRAM
     Route: 065
  2. OXLUMO [Suspect]
     Active Substance: LUMASIRAN
     Dosage: UNK, Q3M
     Route: 065

REACTIONS (1)
  - Crystal nephropathy [Unknown]
